FAERS Safety Report 14914763 (Version 2)
Quarter: 2018Q2

REPORT INFORMATION
  Report Type: Spontaneous
  Country: US (occurrence: US)
  Receive Date: 20180518
  Receipt Date: 20180605
  Transmission Date: 20180711
  Serious: No
  Sender: FDA-Public Use
  Company Number: US-PFIZER INC-2018203696

PATIENT
  Age: 50 Year
  Sex: Female

DRUGS (2)
  1. EUCRISA [Suspect]
     Active Substance: CRISABOROLE
     Dosage: UNK, 2X/DAY (SHE CAN USE IT AS INITIALLY RECOMMENDED BY HER MD)
  2. EUCRISA [Suspect]
     Active Substance: CRISABOROLE
     Dosage: UNK, 1X/DAY

REACTIONS (1)
  - Drug effect incomplete [Unknown]
